FAERS Safety Report 5371515-7 (Version None)
Quarter: 2007Q2

REPORT INFORMATION
  Report Type: 
  Country: None (occurrence: None)
  Receive Date: 20070618
  Receipt Date: 20070115
  Transmission Date: 20071010
  Serious: Yes (Hospitalization)
  Sender: FDA-Public Use
  Company Number: PHEH2007US00884

PATIENT
  Age: 65 Year
  Sex: Female

DRUGS (3)
  1. GLEEVEC [Suspect]
     Indication: CHRONIC MYELOID LEUKAEMIA
     Dosage: 800 MG, QD, ORAL; 400 MG, QD, ORAL
     Route: 048
     Dates: start: 20060101
  2. GLEEVEC [Suspect]
     Indication: CHRONIC MYELOID LEUKAEMIA
     Dosage: 800 MG, QD, ORAL; 400 MG, QD, ORAL
     Route: 048
     Dates: start: 20060301
  3. TOPROL-XL [Concomitant]

REACTIONS (1)
  - PNEUMONIA [None]
